FAERS Safety Report 10039110 (Version 1)
Quarter: 2014Q1

REPORT INFORMATION
  Report Type: Spontaneous
  Country: US (occurrence: None)
  Receive Date: 20140306
  Receipt Date: 20140306
  Transmission Date: 20141002
  Serious: Yes (Hospitalization)
  Sender: FDA-Public Use
  Company Number: 163-21880-13062053

PATIENT
  Age: 68 Year
  Sex: Male

DRUGS (9)
  1. REVLIMID [Suspect]
     Indication: PLASMA CELL MYELOMA
     Route: 048
     Dates: start: 20121224
  2. ACYCLOVIR (ACICLOVIR) (ACICLOVIR) [Concomitant]
  3. BACITRACIN ZINC (BACTIRACIN ZINC) [Concomitant]
  4. CALCIUM CARBONATE (CALCIUM CARBONATE) (CALCIUM CARBONATE) [Concomitant]
  5. CALTRATE 600 + D PLUS (CALCITE D) [Concomitant]
  6. CARDIZEM (DILTIAZEM HYDROCHLORIDE) [Concomitant]
  7. CRESTOR (ROSUVASTATIN) [Concomitant]
  8. DILTIAZEM HCL ER BEADS (DILTIAZEM HYDROCHLORIDE) [Concomitant]
  9. DOXYCYCLINE HYCLATE (DOXYCLINE HYCLATE) [Concomitant]

REACTIONS (1)
  - Pneumonia [None]
